FAERS Safety Report 17585651 (Version 1)
Quarter: 2020Q1

REPORT INFORMATION
  Report Type: Spontaneous
  Country: US (occurrence: US)
  Receive Date: 20200326
  Receipt Date: 20200326
  Transmission Date: 20200409
  Serious: No
  Sender: FDA-Public Use
  Company Number: US-GUERBET-US-20190253

PATIENT
  Age: 29 Year
  Sex: Female

DRUGS (2)
  1. SINOGRAFIN [Concomitant]
     Active Substance: DIATRIZOATE MEGLUMINE\IODIPAMIDE MEGLUMINE
     Indication: HYSTEROSALPINGOGRAM
     Dosage: UNKNOWN DOSE ADMINISTERED PRIOR TO LIPIODOL ADMINISTRATION
     Route: 065
  2. LIPIODOL [Suspect]
     Active Substance: ETHIODIZED OIL
     Indication: HYSTEROSALPINGOGRAM
     Route: 065

REACTIONS (1)
  - Lipogranuloma [Unknown]
